FAERS Safety Report 4674824-X (Version None)
Quarter: 2005Q2

REPORT INFORMATION
  Report Type: 
  Country: None (occurrence: None)
  Receive Date: 20050523
  Receipt Date: 20050512
  Transmission Date: 20051028
  Serious: No
  Sender: FDA-Public Use
  Company Number: RED/05/01/SCH

PATIENT
  Age: 11 Year
  Sex: Female
  Weight: 33 kg

DRUGS (7)
  1. IMMUNE GLOBULIN (HUMAN) [Suspect]
     Indication: IMMUNODEFICIENCY
     Dosage: 0.4 G/KG B.W., MONTYLY, I.V.
     Route: 042
     Dates: start: 20031201
  2. IMMUNE GLOBULIN (HUMAN) [Suspect]
  3. SOLU-MEDRO(METHYLPREDNISOLONE SODIUM SUCCINATE0 [Concomitant]
  4. NORVASC [Concomitant]
  5. OMPRAZOLE (OMEPRAZOLE) [Concomitant]
  6. PREDNISONE [Concomitant]
  7. SANDIMMUNE [Concomitant]

REACTIONS (7)
  - BLOOD PRESSURE SYSTOLIC INCREASED [None]
  - DYSPNOEA [None]
  - FLUSHING [None]
  - HEART RATE INCREASED [None]
  - HYPOXIA [None]
  - INFUSION RELATED REACTION [None]
  - SWELLING [None]
